FAERS Safety Report 4918276-0 (Version None)
Quarter: 2006Q1

REPORT INFORMATION
  Report Type: 
  Country: None (occurrence: None)
  Receive Date: 20060222
  Receipt Date: 20060214
  Transmission Date: 20060701
  Serious: Yes (Hospitalization)
  Sender: FDA-Public Use
  Company Number: BE-JNJFOC-20060203673

PATIENT
  Age: 4 Year
  Sex: Male

DRUGS (3)
  1. INFLIXIMAB [Suspect]
     Indication: CROHN'S DISEASE
     Route: 065
  2. IMURAN [Concomitant]
     Indication: CROHN'S DISEASE
     Route: 065
  3. FERRICURE [Concomitant]
     Indication: CROHN'S DISEASE
     Route: 065

REACTIONS (2)
  - DIARRHOEA HAEMORRHAGIC [None]
  - PYREXIA [None]
